FAERS Safety Report 6509352-X (Version None)
Quarter: 2009Q4

REPORT INFORMATION
  Report Type: 
  Country: None (occurrence: None)
  Receive Date: 20091218
  Receipt Date: 20091218
  Transmission Date: 20100525
  Serious: Yes (Life-Threatening, Hospitalization)
  Sender: FDA-Public Use
  Company Number: None

PATIENT
  Age: 24 Year
  Sex: Male
  Weight: 64.9 kg

DRUGS (7)
  1. HYDROMORPHONE HCL [Suspect]
     Indication: SICKLE CELL ANAEMIA WITH CRISIS
     Dosage: 1 MG BOLUS IV BOLUS
     Route: 040
     Dates: start: 20091215, end: 20091216
  2. IBUPROFEN [Concomitant]
  3. VITAMIN B-12 [Concomitant]
  4. FOLIC ACID [Concomitant]
  5. HYDROCODONE BITARTRATE AND ACETAMINOPHEN [Concomitant]
  6. PREDNISONE [Concomitant]
  7. NEXIUM [Concomitant]

REACTIONS (9)
  - AGGRESSION [None]
  - CHEST PAIN [None]
  - CYANOSIS [None]
  - DYSPNOEA [None]
  - HEART RATE INCREASED [None]
  - METABOLIC ACIDOSIS [None]
  - OXYGEN SATURATION DECREASED [None]
  - RENAL FAILURE ACUTE [None]
  - RESPIRATORY DEPRESSION [None]
